FAERS Safety Report 9164819 (Version 3)
Quarter: 2013Q1

REPORT INFORMATION
  Report Type: Spontaneous
  Country: US (occurrence: US)
  Receive Date: 20130315
  Receipt Date: 20130322
  Transmission Date: 20140127
  Serious: Yes (Other)
  Sender: FDA-Public Use
  Company Number: US-PFIZER INC-2013084464

PATIENT
  Age: 66 Year
  Sex: Female
  Weight: 60.77 kg

DRUGS (6)
  1. NEURONTIN [Suspect]
     Indication: NEURALGIA
     Dosage: 300 MG, 3X/DAY
     Route: 048
     Dates: start: 201210
  2. NEURONTIN [Suspect]
     Indication: NEUROPATHY PERIPHERAL
     Dosage: 300 MG, 1X/DAY
     Route: 048
  3. NEURONTIN [Suspect]
     Indication: PAIN IN EXTREMITY
     Dosage: 300 MG, 1X/DAY
     Route: 048
     Dates: start: 201302
  4. LYRICA [Suspect]
     Indication: NEURALGIA
     Dosage: UNK
  5. TOPAMAX [Suspect]
     Indication: NEUROPATHY PERIPHERAL
     Dosage: UNK
     Dates: start: 20130308
  6. ACETAMINOPHEN W/OXYCODONE [Concomitant]
     Indication: PAIN
     Dosage: UNK

REACTIONS (23)
  - Visual impairment [Unknown]
  - Diplopia [Unknown]
  - Diabetes mellitus [Unknown]
  - Spinal cord disorder [Unknown]
  - Nerve injury [Unknown]
  - Neuralgia [Unknown]
  - Rash [Unknown]
  - Dyspnoea [Unknown]
  - Oropharyngeal pain [Unknown]
  - Gait disturbance [Unknown]
  - Hypertension [Unknown]
  - Fibromyalgia [Unknown]
  - Pruritus [Unknown]
  - Eye disorder [Unknown]
  - Vision blurred [Unknown]
  - Electromyogram abnormal [Unknown]
  - Intervertebral disc disorder [Unknown]
  - White blood cell count increased [Unknown]
  - Blood glucose increased [Unknown]
  - Skin reaction [Unknown]
  - Hypoaesthesia [Unknown]
  - Paraesthesia [Unknown]
  - Off label use [Unknown]
